FAERS Safety Report 8268309-1 (Version None)
Quarter: 2012Q2

REPORT INFORMATION
  Report Type: 
  Country: None (occurrence: None)
  Receive Date: 20120409
  Receipt Date: 20120327
  Transmission Date: 20120825
  Serious: Yes (Hospitalization)
  Sender: FDA-Public Use
  Company Number: FR-MEDIMMUNE-MEDI-0015371

PATIENT
  Sex: Female

DRUGS (5)
  1. SYNAGIS [Suspect]
     Route: 030
     Dates: start: 20120106, end: 20120207
  2. FERROUS FUMARATE [Concomitant]
  3. GAVISCAN [Concomitant]
  4. NEXIUM [Concomitant]
  5. VITAMINES ADEC [Concomitant]

REACTIONS (1)
  - INJECTION SITE ABSCESS [None]
